FAERS Safety Report 8117969-4 (Version None)
Quarter: 2011Q4

REPORT INFORMATION
  Report Type: 
  Country: None (occurrence: None)
  Receive Date: 20111227
  Receipt Date: 20110712
  Transmission Date: 20120403
  Serious: Yes (Other)
  Sender: FDA-Public Use
  Company Number: PHHY2011US61977

PATIENT
  Sex: Female

DRUGS (4)
  1. PRAVASTATIN [Concomitant]
  2. FEMARA [Suspect]
     Dosage: 2.5 MG, QD
  3. AVAPRO [Concomitant]
  4. METOPROLOL TARTRATE [Concomitant]

REACTIONS (1)
  - WRIST FRACTURE [None]
